FAERS Safety Report 8617141-5 (Version None)
Quarter: 2012Q3

REPORT INFORMATION
  Report Type: 
  Country: None (occurrence: None)
  Receive Date: 20120823
  Receipt Date: 20120820
  Transmission Date: 20120928
  Serious: No
  Sender: FDA-Public Use
  Company Number: US-PFIZER INC-2012203957

PATIENT

DRUGS (3)
  1. ZITHROMAX [Suspect]
     Dosage: UNK
  2. AZITHROMYCIN [Suspect]
     Dosage: 250 MG, UNK (TABLETS)
  3. BROMPHENIRAMINE MALEATE [Suspect]
     Dosage: UNK

REACTIONS (1)
  - MIGRAINE [None]
